FAERS Safety Report 9034688 (Version 2)
Quarter: 2013Q1

REPORT INFORMATION
  Report Type: Spontaneous
  Country: JP (occurrence: None)
  Receive Date: 20130118
  Receipt Date: 20130213
  Transmission Date: 20140127
  Serious: Yes (Death, Hospitalization)
  Sender: FDA-Public Use
  Company Number: ADR-2013-00057

PATIENT
  Age: 65 Year
  Sex: Male

DRUGS (1)
  1. GABALON [Suspect]
     Dosage: 84 MCG/DAY

REACTIONS (2)
  - Completed suicide [None]
  - Fall [None]
